FAERS Safety Report 7659746-4 (Version None)
Quarter: 2011Q3

REPORT INFORMATION
  Report Type: 
  Country: None (occurrence: None)
  Receive Date: 20110805
  Receipt Date: 20110728
  Transmission Date: 20111222
  Serious: Yes (Hospitalization, Other)
  Sender: FDA-Public Use
  Company Number: PHHY2011TR68355

PATIENT
  Age: 16 Year
  Sex: Female

DRUGS (1)
  1. AMLODIPINE [Suspect]
     Dosage: 50 DF, UNK
     Route: 048

REACTIONS (14)
  - RESPIRATORY ARREST [None]
  - MITRAL VALVE INCOMPETENCE [None]
  - SINUS TACHYCARDIA [None]
  - DYSPNOEA [None]
  - BLOOD PRESSURE DECREASED [None]
  - URINE OUTPUT DECREASED [None]
  - OVERDOSE [None]
  - PULMONARY OEDEMA [None]
  - HEART RATE INCREASED [None]
  - PYREXIA [None]
  - METABOLIC ALKALOSIS [None]
  - SUICIDE ATTEMPT [None]
  - AORTIC VALVE INCOMPETENCE [None]
  - ALANINE AMINOTRANSFERASE INCREASED [None]
